FAERS Safety Report 4316813-0 (Version None)
Quarter: 2004Q1

REPORT INFORMATION
  Report Type: 
  Country: None (occurrence: None)
  Receive Date: 20040308
  Receipt Date: 20040210
  Transmission Date: 20041129
  Serious: No
  Sender: FDA-Public Use
  Company Number: PHEH2004US01001

PATIENT
  Age: 57 Year
  Sex: Female
  Weight: 71.7 kg

DRUGS (5)
  1. GLEEVEC [Suspect]
     Indication: CHRONIC MYELOID LEUKAEMIA
     Dosage: 800MG, QD ORAL
     Route: 048
     Dates: start: 20021230
  2. NORVASC [Concomitant]
  3. MAXZIDE [Concomitant]
  4. MOTRIN [Concomitant]
  5. BENADRYL [Concomitant]

REACTIONS (3)
  - NAUSEA [None]
  - SKIN DEPIGMENTATION [None]
  - VOMITING [None]
